FAERS Safety Report 4731355-6 (Version None)
Quarter: 2005Q3

REPORT INFORMATION
  Report Type: 
  Country: None (occurrence: None)
  Receive Date: 20050802
  Receipt Date: 20050719
  Transmission Date: 20060218
  Serious: Yes (Other)
  Sender: FDA-Public Use
  Company Number: 200515901US

PATIENT
  Sex: Male
  Weight: 106.3 kg

DRUGS (2)
  1. NORPRAMIN [Suspect]
     Indication: DEPRESSION
     Dosage: DOSE: UNK
     Dates: start: 20050401, end: 20050401
  2. UNKNOWN DRUG [Concomitant]
     Dosage: DOSE: UNKNOWN

REACTIONS (4)
  - BENIGN PROSTATIC HYPERPLASIA [None]
  - BURNING SENSATION [None]
  - CONSTIPATION [None]
  - URINARY RETENTION [None]
